FAERS Safety Report 16970433 (Version 1)
Quarter: 2019Q4

REPORT INFORMATION
  Report Type: Spontaneous
  Country: JP (occurrence: JP)
  Receive Date: 20191029
  Receipt Date: 20191029
  Transmission Date: 20200122
  Serious: Yes (Hospitalization, Disabling, Other)
  Sender: FDA-Public Use
  Company Number: JP-PFIZER INC-2019366482

PATIENT
  Age: 47 Year
  Sex: Male

DRUGS (1)
  1. VYNDAQEL [Suspect]
     Active Substance: TAFAMIDIS MEGLUMINE
     Indication: CARDIAC AMYLOIDOSIS
     Dosage: 20 MG, DAILY
     Route: 048
     Dates: start: 20150305

REACTIONS (2)
  - Thermal burn [Recovered/Resolved with Sequelae]
  - Gangrene [Recovered/Resolved with Sequelae]

NARRATIVE: CASE EVENT DATE: 201904
